FAERS Safety Report 14962645 (Version 1)
Quarter: 2018Q2

REPORT INFORMATION
  Report Type: Spontaneous
  Country: MY (occurrence: MY)
  Receive Date: 20180601
  Receipt Date: 20180601
  Transmission Date: 20180711
  Serious: Yes (Hospitalization)
  Sender: FDA-Public Use
  Company Number: MY-ROCHE-2133510

PATIENT
  Age: 45 Year
  Sex: Female
  Weight: 86 kg

DRUGS (3)
  1. HERCEPTIN [Suspect]
     Active Substance: TRASTUZUMAB
     Indication: PRODUCT USED FOR UNKNOWN INDICATION
     Dosage: NEO-ADJUVANT 1ST CYCLE
     Route: 065
     Dates: start: 20180523
  2. DOCETAXEL. [Suspect]
     Active Substance: DOCETAXEL
     Indication: PRODUCT USED FOR UNKNOWN INDICATION
     Dosage: NEO-ADJUVANT 1ST CYCLE
     Route: 065
     Dates: start: 20180523
  3. PERJETA [Suspect]
     Active Substance: PERTUZUMAB
     Indication: PRODUCT USED FOR UNKNOWN INDICATION
     Dosage: NEO-ADJUVANT 1ST CYCLE
     Route: 065
     Dates: start: 20180523

REACTIONS (4)
  - Fatigue [Unknown]
  - Diarrhoea [Unknown]
  - Breast pain [Unknown]
  - Pyrexia [Unknown]
